FAERS Safety Report 5568862-2 (Version None)
Quarter: 2007Q4

REPORT INFORMATION
  Report Type: 
  Country: None (occurrence: None)
  Receive Date: 20071220
  Receipt Date: 20071213
  Transmission Date: 20080405
  Serious: No
  Sender: FDA-Public Use
  Company Number: GR-AVENTIS-200721303GDDC

PATIENT
  Age: 85 Year
  Sex: Male

DRUGS (3)
  1. INSULIN GLARGINE [Suspect]
     Indication: DIABETES MELLITUS
     Route: 058
  2. FERRUM [Concomitant]
  3. UNKNOWN DRUG [Concomitant]

REACTIONS (1)
  - WEIGHT INCREASED [None]
